FAERS Safety Report 6964709-8 (Version None)
Quarter: 2010Q3

REPORT INFORMATION
  Report Type: 
  Country: None (occurrence: None)
  Receive Date: 20100903
  Receipt Date: 20100824
  Transmission Date: 20110219
  Serious: Yes (Other)
  Sender: FDA-Public Use
  Company Number: SE-PFIZER INC-2010106249

PATIENT
  Age: 90 Year
  Sex: Male

DRUGS (9)
  1. SPIRONOLACTONE [Suspect]
     Indication: CARDIAC FAILURE
     Dosage: 25 MG, 1X/DAY
  2. SPIRONOLACTONE [Suspect]
     Indication: DIURETIC THERAPY
  3. DUROFERON [Suspect]
     Dosage: 100 MG, 1X/DAY
  4. ASPIRIN [Concomitant]
     Dosage: 75 MG, 1X/DAY
  5. IMPUGAN [Concomitant]
     Indication: CARDIAC FAILURE
     Dosage: 40 MG, 2X/DAY
  6. IMPUGAN [Concomitant]
     Indication: DIURETIC THERAPY
  7. ENALAPRIL [Concomitant]
     Indication: CARDIAC FAILURE
     Dosage: 2.5 MG, 2X/DAY
  8. OMEPRAZOLE [Concomitant]
     Dosage: 20 MG, 1X/DAY
  9. FOLACIN [Concomitant]
     Dosage: 5 MG, 1X/DAY

REACTIONS (3)
  - ABDOMINAL DISCOMFORT [None]
  - BLOOD POTASSIUM INCREASED [None]
  - BLOOD PRESSURE DECREASED [None]
